FAERS Safety Report 6650900-7 (Version None)
Quarter: 2010Q1

REPORT INFORMATION
  Report Type: 
  Country: None (occurrence: None)
  Receive Date: 20100309
  Receipt Date: 20100115
  Transmission Date: 20100710
  Serious: No
  Sender: FDA-Public Use
  Company Number: 2010SP003831

PATIENT
  Age: 17 Year
  Sex: Female

DRUGS (5)
  1. SAPHRIS [Suspect]
     Indication: BIPOLAR I DISORDER
     Dosage: SEE IMAGE
  2. WELLBUTRIN [Concomitant]
  3. LEXAPRO [Concomitant]
  4. CLONAZEPAM [Concomitant]
  5. LAMICTAL [Concomitant]

REACTIONS (4)
  - FEELING DRUNK [None]
  - ORTHOSTATIC HYPOTENSION [None]
  - SEDATION [None]
  - WRONG TECHNIQUE IN DRUG USAGE PROCESS [None]
